FAERS Safety Report 24557379 (Version 1)
Quarter: 2024Q4

REPORT INFORMATION
  Report Type: Spontaneous
  Country: DE (occurrence: DE)
  Receive Date: 20241028
  Receipt Date: 20241028
  Transmission Date: 20250114
  Serious: Yes (Hospitalization)
  Sender: EISAI
  Company Number: DE-Eisai-EC-2024-177112

PATIENT
  Age: 56 Year
  Sex: Female
  Weight: 35 kg

DRUGS (3)
  1. LENVIMA [Suspect]
     Active Substance: LENVATINIB
     Indication: Poorly differentiated thyroid carcinoma
     Route: 048
     Dates: start: 202005, end: 202006
  2. LENVIMA [Suspect]
     Active Substance: LENVATINIB
     Dosage: DOSE AND FREQUENCY UNKNOWN (VARIABLE DOSE WITH TREATMENT BREAKS)
     Route: 048
     Dates: start: 202006, end: 202306
  3. LENVIMA [Suspect]
     Active Substance: LENVATINIB
     Dosage: 10 MG ON WEEKDAYS AND 4 MG ON WEEKENDS
     Route: 048
     Dates: start: 202310

REACTIONS (2)
  - Nephrotic syndrome [Unknown]
  - Acute kidney injury [Unknown]

NARRATIVE: CASE EVENT DATE: 20230601
